FAERS Safety Report 13692508 (Version 2)
Quarter: 2017Q2

REPORT INFORMATION
  Report Type: Spontaneous
  Country: FR (occurrence: FR)
  Receive Date: 20170627
  Receipt Date: 20170629
  Transmission Date: 20170830
  Serious: Yes (Hospitalization)
  Sender: FDA-Public Use
  Company Number: FR-ROCHE-1953046

PATIENT
  Age: 81 Year
  Sex: Male

DRUGS (19)
  1. VINCRISTINE [Concomitant]
     Active Substance: VINCRISTINE
     Indication: B-CELL LYMPHOMA
     Dosage: 6 CYCLES OF RITUXIMAB-CHOP IN 2014?CUMULATIVE DOSES OF VINCRISTINE 12 MG
     Route: 065
     Dates: start: 2014
  2. METFORMIN HYDROCHLORIDE. [Concomitant]
     Active Substance: METFORMIN HYDROCHLORIDE
     Route: 065
  3. MABTHERA [Suspect]
     Active Substance: RITUXIMAB
     Indication: B-CELL LYMPHOMA
     Dosage: 5 CYCLES AT A RATE OF 20 MG/DAY FOR 3 DAYS BETWEEN SEP/2004 AND JAN/2005
     Route: 058
     Dates: start: 200409, end: 200501
  4. PREDNISOLONE. [Concomitant]
     Active Substance: PREDNISOLONE
     Dosage: 6 CYCLES OF RITUXIMAB-CHOP IN 2014?CUMULATIVE DOSES OF PREDNISOLONE 3000 MG
     Route: 065
     Dates: start: 20160616, end: 20161201
  5. MODOPAR [Concomitant]
     Active Substance: BENSERAZIDE HYDROCHLORIDE\LEVODOPA
     Route: 065
  6. PARIET [Concomitant]
     Active Substance: RABEPRAZOLE SODIUM
     Route: 065
  7. PREDNISOLONE. [Concomitant]
     Active Substance: PREDNISOLONE
     Indication: B-CELL LYMPHOMA
     Dosage: 6 CYCLES OF RITUXIMAB-CHOP IN 2014?CUMULATIVE DOSES OF PREDNISOLONE 3000 MG
     Route: 065
     Dates: start: 2014
  8. PARACETAMOL [Concomitant]
     Active Substance: ACETAMINOPHEN
     Route: 065
     Dates: start: 20160616, end: 20161201
  9. MABTHERA [Suspect]
     Active Substance: RITUXIMAB
     Indication: B-CELL LYMPHOMA
     Dosage: 6 CYCLES OF RITUXIMAB-CHOP IN 2014 (LOW DOSE)?CUMULATIVE DOSES OF RITUXIMAB 700 MG/CYCLE, 4200 MG TO
     Route: 042
     Dates: start: 2014
  10. CYCLOPHOSPHAMIDE. [Concomitant]
     Active Substance: CYCLOPHOSPHAMIDE
     Indication: B-CELL LYMPHOMA
     Dosage: 6 CYCLES OF RITUXIMAB-CHOP IN 2014?CUMULATIVE DOSES OF CYCLOPHOSPHAMIDE 7800 MG
     Route: 065
     Dates: start: 2014
  11. HYTACAND [Concomitant]
     Active Substance: CANDESARTAN CILEXETIL\HYDROCHLOROTHIAZIDE
     Dosage: 16/12.5 MG/DAY
     Route: 065
  12. LYRICA [Concomitant]
     Active Substance: PREGABALIN
     Route: 065
  13. LEVOTHYROX [Concomitant]
     Active Substance: LEVOTHYROXINE
     Route: 065
  14. CETRIZINE [Concomitant]
     Active Substance: CETIRIZINE HYDROCHLORIDE
     Route: 065
     Dates: start: 20160616, end: 20161201
  15. ZANIDIP [Concomitant]
     Active Substance: LERCANIDIPINE HYDROCHLORIDE
     Route: 065
  16. TEMESTA (FRANCE) [Concomitant]
     Active Substance: LORAZEPAM
     Route: 065
  17. MABTHERA [Suspect]
     Active Substance: RITUXIMAB
     Dosage: MAINTENANCE THERAPY WITH RITUXIMAB ALONE IV FOR 8 CYCLES
     Route: 042
     Dates: start: 20140512, end: 20160204
  18. MABTHERA [Suspect]
     Active Substance: RITUXIMAB
     Dosage: SUBCUTANEOUS FOR 4 CYCLES
     Route: 058
     Dates: start: 20160616, end: 20161201
  19. DOXORUBICIN [Concomitant]
     Active Substance: DOXORUBICIN
     Indication: B-CELL LYMPHOMA
     Dosage: 6 CYCLES OF RITUXIMAB-CHOP IN 2014?CUMULATIVE DOSES OF DOXORUBICIN 532 MG,
     Route: 065
     Dates: start: 2014

REACTIONS (3)
  - Progressive multifocal leukoencephalopathy [Not Recovered/Not Resolved]
  - Product use in unapproved indication [Unknown]
  - Off label use [Unknown]

NARRATIVE: CASE EVENT DATE: 201705
